FAERS Safety Report 15770944 (Version 1)
Quarter: 2018Q4

REPORT INFORMATION
  Report Type: Report from Study
  Country: CN (occurrence: CN)
  Receive Date: 20181228
  Receipt Date: 20181228
  Transmission Date: 20190205
  Serious: Yes (Other)
  Sender: FDA-Public Use
  Company Number: CN-JNJFOC-20181221026

PATIENT

DRUGS (2)
  1. RISPERDAL [Suspect]
     Active Substance: RISPERIDONE
     Indication: MENTAL DISORDER
     Route: 048
  2. ESTAZOLAM. [Concomitant]
     Active Substance: ESTAZOLAM
     Indication: SLEEP DISORDER
     Route: 065

REACTIONS (8)
  - Off label use [Unknown]
  - Hepatic function abnormal [Unknown]
  - Somnolence [Unknown]
  - Body mass index abnormal [Unknown]
  - Extrapyramidal disorder [Unknown]
  - Renal impairment [Unknown]
  - Electrocardiogram abnormal [Unknown]
  - Drug ineffective for unapproved indication [Unknown]
